FAERS Safety Report 6105737-4 (Version None)
Quarter: 2009Q1

REPORT INFORMATION
  Report Type: 
  Country: None (occurrence: None)
  Receive Date: 20090227
  Receipt Date: 20081029
  Transmission Date: 20090719
  Serious: Yes (Hospitalization)
  Sender: FDA-Public Use
  Company Number: RB-5647-2008

PATIENT
  Age: 46 Year
  Sex: Female
  Weight: 63.5036 kg

DRUGS (10)
  1. SUBOXONE [Suspect]
     Indication: DRUG DEPENDENCE
     Dosage: 8 MG BID SUBLINGUAL, 8 MG QD SUBLINGUAL, 1 MG QD SUBLINGUAL
     Route: 060
     Dates: start: 20080201, end: 20080301
  2. SUBOXONE [Suspect]
     Indication: PAIN
     Dosage: 8 MG BID SUBLINGUAL, 8 MG QD SUBLINGUAL, 1 MG QD SUBLINGUAL
     Route: 060
     Dates: start: 20080201, end: 20080301
  3. SUBOXONE [Suspect]
     Indication: DRUG DEPENDENCE
     Dosage: 8 MG BID SUBLINGUAL, 8 MG QD SUBLINGUAL, 1 MG QD SUBLINGUAL
     Route: 060
     Dates: start: 20080301, end: 20080401
  4. SUBOXONE [Suspect]
     Indication: PAIN
     Dosage: 8 MG BID SUBLINGUAL, 8 MG QD SUBLINGUAL, 1 MG QD SUBLINGUAL
     Route: 060
     Dates: start: 20080301, end: 20080401
  5. SUBOXONE [Suspect]
     Indication: DRUG DEPENDENCE
     Dosage: 8 MG BID SUBLINGUAL, 8 MG QD SUBLINGUAL, 1 MG QD SUBLINGUAL
     Route: 060
     Dates: start: 20080401, end: 20081027
  6. SUBOXONE [Suspect]
     Indication: PAIN
     Dosage: 8 MG BID SUBLINGUAL, 8 MG QD SUBLINGUAL, 1 MG QD SUBLINGUAL
     Route: 060
     Dates: start: 20080401, end: 20081027
  7. SUBUTEX [Suspect]
     Indication: WITHDRAWAL SYNDROME
     Dosage: SUBLINQUAL
     Route: 060
     Dates: start: 20081101, end: 20081101
  8. TRAZODONE HCL [Suspect]
     Indication: INSOMNIA
     Dosage: ORAL
     Route: 048
  9. XANAX [Concomitant]
  10. WELLBUTRIN [Concomitant]

REACTIONS (4)
  - INSOMNIA [None]
  - SUICIDAL IDEATION [None]
  - TREMOR [None]
  - WITHDRAWAL SYNDROME [None]
